FAERS Safety Report 14539595 (Version 2)
Quarter: 2018Q2

REPORT INFORMATION
  Report Type: Other
  Country: IT (occurrence: IT)
  Receive Date: 20180216
  Receipt Date: 20180422
  Transmission Date: 20180711
  Serious: Yes (Hospitalization, Other)
  Sender: FDA-Public Use
  Company Number: IT-APOTEX-2018AP006770

PATIENT
  Age: 52 Year
  Sex: Male

DRUGS (4)
  1. STILNOX [Suspect]
     Active Substance: ZOLPIDEM TARTRATE
     Indication: PRODUCT USED FOR UNKNOWN INDICATION
     Dosage: 40 DF, QD
     Route: 048
     Dates: start: 20160928, end: 20160928
  2. PAROXETINE. [Suspect]
     Active Substance: PAROXETINE
     Dosage: 400 MG, QD
     Route: 048
     Dates: start: 20160928, end: 20160928
  3. FLUNOX [Suspect]
     Active Substance: FLURAZEPAM HYDROCHLORIDE
     Indication: PRODUCT USED FOR UNKNOWN INDICATION
     Dosage: 600 MG, QD
     Route: 048
     Dates: start: 20160928, end: 20160928
  4. XANAX [Concomitant]
     Active Substance: ALPRAZOLAM
     Indication: PRODUCT USED FOR UNKNOWN INDICATION
     Dosage: 4 MG, UNK
     Route: 048

REACTIONS (3)
  - Psychomotor hyperactivity [Unknown]
  - Drug abuse [Unknown]
  - Anxiety [Unknown]

NARRATIVE: CASE EVENT DATE: 20160929
